FAERS Safety Report 9255478 (Version 2)
Quarter: 2013Q2

REPORT INFORMATION
  Report Type: Report from Study
  Country: US (occurrence: US)
  Receive Date: 20130425
  Receipt Date: 20130527
  Transmission Date: 20140414
  Serious: Yes (Death)
  Sender: FDA-Public Use
  Company Number: PHEH2013US009030

PATIENT
  Sex: Female

DRUGS (1)
  1. TOBI [Suspect]
     Indication: LUNG NEOPLASM MALIGNANT
     Dosage: 300 MG, BID

REACTIONS (2)
  - Small cell carcinoma [Fatal]
  - Metastatic neoplasm [Fatal]
